FAERS Safety Report 24953192 (Version 1)
Quarter: 2025Q1

REPORT INFORMATION
  Report Type: Spontaneous
  Country: US (occurrence: US)
  Receive Date: 20250211
  Receipt Date: 20250211
  Transmission Date: 20250409
  Serious: No
  Sender: GLENMARK
  Company Number: US-GLENMARK PHARMACEUTICALS-2024GMK095228

PATIENT

DRUGS (1)
  1. ZONISAMIDE [Suspect]
     Active Substance: ZONISAMIDE
     Indication: Motor dysfunction
     Route: 048

REACTIONS (4)
  - Hypersomnia [Unknown]
  - Somnolence [Unknown]
  - Product use in unapproved indication [Unknown]
  - Product quality issue [Unknown]
